FAERS Safety Report 11691072 (Version 4)
Quarter: 2016Q1

REPORT INFORMATION
  Report Type: Spontaneous
  Country: US (occurrence: US)
  Receive Date: 20151102
  Receipt Date: 20160107
  Transmission Date: 20160525
  Serious: Yes (Other)
  Sender: FDA-Public Use
  Company Number: US-GLAXOSMITHKLINE-US2015GSK155591

PATIENT
  Sex: Female

DRUGS (6)
  1. CARVEDILOL TABLET [Suspect]
     Active Substance: CARVEDILOL
     Indication: HYPERTENSION
     Dosage: 12.5 MG, U
     Dates: start: 201503
  2. COREG [Suspect]
     Active Substance: CARVEDILOL
     Indication: ANGINA PECTORIS
  3. COREG [Suspect]
     Active Substance: CARVEDILOL
     Indication: HEART RATE IRREGULAR
  4. CARVEDILOL TABLET [Suspect]
     Active Substance: CARVEDILOL
     Indication: ANGINA PECTORIS
  5. COREG [Suspect]
     Active Substance: CARVEDILOL
     Indication: HYPERTENSION
     Dosage: 12.5 MG, U
     Dates: start: 2008
  6. CARVEDILOL TABLET [Suspect]
     Active Substance: CARVEDILOL
     Indication: HEART RATE IRREGULAR

REACTIONS (7)
  - Diabetes mellitus [Unknown]
  - Hypertension [Unknown]
  - Blood pressure fluctuation [Unknown]
  - Product substitution issue [Unknown]
  - Drug ineffective [Unknown]
  - Feeling abnormal [Unknown]
  - Nasopharyngitis [Unknown]
